FAERS Safety Report 4565458-6 (Version None)
Quarter: 2005Q1

REPORT INFORMATION
  Report Type: 
  Country: None (occurrence: None)
  Receive Date: 20050131
  Receipt Date: 20050119
  Transmission Date: 20050727
  Serious: Yes (Other)
  Sender: FDA-Public Use
  Company Number: AU-NOVOPROD-241768

PATIENT
  Age: 39 Year
  Sex: Male

DRUGS (1)
  1. MIXTARD HUMAN 70/30 [Suspect]
     Indication: ILL-DEFINED DISORDER

REACTIONS (4)
  - DIALYSIS [None]
  - PANCREAS TRANSPLANT [None]
  - RENAL FAILURE [None]
  - RENAL TRANSPLANT [None]
